FAERS Safety Report 10029333 (Version 1)
Quarter: 2014Q1

REPORT INFORMATION
  Report Type: Spontaneous
  Country: GB (occurrence: GB)
  Receive Date: 20140321
  Receipt Date: 20140321
  Transmission Date: 20141002
  Serious: Yes (Other)
  Sender: FDA-Public Use
  Company Number: PHFR2014GB002306

PATIENT
  Sex: Female

DRUGS (11)
  1. VOLTAROL [Suspect]
     Indication: KNEE ARTHROPLASTY
     Dosage: 150 UKN, (100 IN THE MORNING AND 50 IN THE EVENING)
  2. VOLTAROL [Suspect]
     Dosage: 100 UNK, UNK
  3. MORPHINE [Concomitant]
     Indication: POSTOPERATIVE CARE
  4. ATORVASTATIN [Concomitant]
  5. CANDESARTAN [Concomitant]
  6. BENDROFLUMETHIAZIDE [Concomitant]
  7. ADCAL D3 [Concomitant]
     Indication: BACK DISORDER
  8. PREGABALIN [Concomitant]
  9. LEVOTHYROXIN [Concomitant]
  10. OMEPRAZOLE [Concomitant]
  11. CO-CODAMOL [Concomitant]

REACTIONS (2)
  - Spinal osteoarthritis [Unknown]
  - Spinal pain [Unknown]
